FAERS Safety Report 16839503 (Version 2)
Quarter: 2019Q4

REPORT INFORMATION
  Report Type: Spontaneous
  Country: US (occurrence: US)
  Receive Date: 20190923
  Receipt Date: 20191030
  Transmission Date: 20200122
  Serious: No
  Sender: FDA-Public Use
  Company Number: US-BAUSCH-BL-2019-023748

PATIENT
  Age: 66 Year
  Sex: Female

DRUGS (9)
  1. TOBRAMYCIN AND DEXAMETHASONE [Suspect]
     Active Substance: DEXAMETHASONE\TOBRAMYCIN
     Dosage: THE PATIENT USED AT MOST FOUR DOSES OR TWO DAYS
     Route: 047
     Dates: start: 20190813, end: 201908
  2. TOBRAMYCIN AND DEXAMETHASONE [Suspect]
     Active Substance: DEXAMETHASONE\TOBRAMYCIN
     Dosage: PREVIOUS BOTTLES (WHICH WAS EXPIRED)
     Route: 047
     Dates: start: 20190814, end: 201908
  3. CLARITIN-D NOS [Concomitant]
     Active Substance: LORATADINE\PSEUDOEPHEDRINE SULFATE
     Indication: RHINITIS ALLERGIC
     Route: 048
  4. HYDROXYZINE HCL [Concomitant]
     Active Substance: HYDROXYZINE HYDROCHLORIDE
     Indication: ANXIETY
     Dosage: AS NEEDED
     Route: 048
  5. TOBRAMYCIN AND DEXAMETHASONE [Suspect]
     Active Substance: DEXAMETHASONE\TOBRAMYCIN
     Dosage: NEW REPLACED BOTTLE.
     Route: 047
     Dates: start: 201908
  6. SINGULAIR [Concomitant]
     Active Substance: MONTELUKAST SODIUM
     Indication: RHINITIS ALLERGIC
  7. TOBRAMYCIN AND DEXAMETHASONE [Suspect]
     Active Substance: DEXAMETHASONE\TOBRAMYCIN
     Dosage: IN THE MORNING FOR ANOTHER TWO WEEKS
     Route: 047
     Dates: end: 201908
  8. ALBUTEROL. [Concomitant]
     Active Substance: ALBUTEROL
     Indication: BRONCHITIS
     Dosage: INHALER
     Route: 055
  9. TOBRAMYCIN AND DEXAMETHASONE [Suspect]
     Active Substance: DEXAMETHASONE\TOBRAMYCIN
     Indication: PRODUCT USED FOR UNKNOWN INDICATION
     Dosage: FOR ONE WEEK/ IN THE MORNING AND AT NOON (STRENGTH: 0.1/0.3 PERCENT)
     Route: 047

REACTIONS (4)
  - Expired product administered [Unknown]
  - Eye irritation [Recovered/Resolved]
  - Eye pain [Recovered/Resolved]
  - Product quality issue [Unknown]

NARRATIVE: CASE EVENT DATE: 201908
